FAERS Safety Report 5987509-4 (Version None)
Quarter: 2008Q4

REPORT INFORMATION
  Report Type: 
  Country: None (occurrence: None)
  Receive Date: 20081209
  Receipt Date: 20081201
  Transmission Date: 20090506
  Serious: Yes (Hospitalization)
  Sender: FDA-Public Use
  Company Number: US-ELI_LILLY_AND_COMPANY-US200811001670

PATIENT
  Age: 86 Year
  Sex: Female
  Weight: 54.875 kg

DRUGS (20)
  1. CYMBALTA [Suspect]
     Indication: DEPRESSION
     Dosage: 60 MG, UNK
     Dates: start: 20080926, end: 20080101
  2. REQUIP [Concomitant]
     Dosage: 1 MG, EACH MORNING
  3. REQUIP [Concomitant]
     Dosage: 2 MG, DAILY (1/D)
  4. REQUIP [Concomitant]
     Dosage: 2 MG, EACH EVENING
  5. REQUIP [Concomitant]
     Dosage: 1 D/F, UNK
  6. DUONEB [Concomitant]
  7. PULMICORT-100 [Concomitant]
  8. FOSAMAX [Concomitant]
  9. OMEPRAZOLE [Concomitant]
     Dosage: 20 MG, DAILY (1/D)
  10. FUROSEMIDE [Concomitant]
     Dosage: 80 MG, DAILY (1/D)
  11. PREDNISONE TAB [Concomitant]
     Dosage: 6 MG, DAILY (1/D)
  12. GLYCOLAX [Concomitant]
  13. FLONASE [Concomitant]
  14. PROMETHAZINE [Concomitant]
  15. ACETAMINOPHEN [Concomitant]
     Dosage: 650 MG, 4/D
  16. ASPIRIN [Concomitant]
     Dosage: 81 MG, DAILY (1/D)
  17. LANOXIN [Concomitant]
     Dosage: 0.125 UG, DAILY (1/D)
  18. COUMADIN [Concomitant]
     Dosage: 3 MG, DAILY (1/D)
  19. ATROVENT [Concomitant]
  20. MUCINEX [Concomitant]

REACTIONS (4)
  - DELIRIUM [None]
  - DRUG INTERACTION [None]
  - DYSTONIA [None]
  - PNEUMONIA [None]
